FAERS Safety Report 14153692 (Version 2)
Quarter: 2018Q1

REPORT INFORMATION
  Report Type: Spontaneous
  Country: US (occurrence: US)
  Receive Date: 20171102
  Receipt Date: 20180201
  Transmission Date: 20180508
  Serious: No
  Sender: FDA-Public Use
  Company Number: US-SA-2017SA203650

PATIENT
  Age: 51 Year
  Sex: Female

DRUGS (5)
  1. PRALUENT [Suspect]
     Active Substance: ALIROCUMAB
     Indication: BLOOD CHOLESTEROL
     Route: 058
     Dates: start: 201708
  2. LIPITOR [Concomitant]
     Active Substance: ATORVASTATIN CALCIUM
     Route: 065
  3. ALIROCUMAB PREFILLED PEN [Suspect]
     Active Substance: ALIROCUMAB
     Indication: BLOOD CHOLESTEROL
     Dates: start: 201708
  4. TRICOR [Concomitant]
     Active Substance: FENOFIBRATE
     Route: 065
  5. LOVAZA [Concomitant]
     Active Substance: OMEGA-3-ACID ETHYL ESTERS
     Route: 065

REACTIONS (8)
  - Dizziness [Unknown]
  - Blood pressure decreased [Unknown]
  - Renal pain [Unknown]
  - Blood triglycerides abnormal [Unknown]
  - Syncope [Unknown]
  - Bladder pain [Unknown]
  - Flank pain [Unknown]
  - Weight increased [Unknown]

NARRATIVE: CASE EVENT DATE: 2017
